FAERS Safety Report 15401480 (Version 7)
Quarter: 2019Q3

REPORT INFORMATION
  Report Type: Report from Study
  Country: BR (occurrence: BR)
  Receive Date: 20180919
  Receipt Date: 20190920
  Transmission Date: 20191004
  Serious: Yes (Hospitalization, Other)
  Sender: FDA-Public Use
  Company Number: PHHY2018BR097401

PATIENT
  Age: 60 Year
  Sex: Female
  Weight: 71 kg

DRUGS (13)
  1. COSENTYX [Suspect]
     Active Substance: SECUKINUMAB
     Indication: PSORIATIC ARTHROPATHY
     Dosage: 300 MG, QW FOR 5 WEEKS
     Route: 058
     Dates: start: 201807
  2. COSENTYX [Suspect]
     Active Substance: SECUKINUMAB
     Indication: HYPERSENSITIVITY
     Dosage: 300 MG, QMO (EVERY 28 DAYS)
     Route: 058
  3. ENALAPRIL [Concomitant]
     Active Substance: ENALAPRIL
     Indication: HYPERTENSION
     Dosage: 1 DF, BID
     Route: 048
  4. VITAFER [Concomitant]
     Indication: ANAEMIA
     Dosage: 1 DF, BID
     Route: 048
  5. CARVEDILOL. [Concomitant]
     Active Substance: CARVEDILOL
     Indication: HYPERTENSION
     Dosage: 1 DF, BID
     Route: 048
  6. ISORDIL [Concomitant]
     Active Substance: ISOSORBIDE DINITRATE
     Indication: DEPRESSION
     Dosage: 1 DF, BID
     Route: 048
  7. CAPTOPRIL. [Concomitant]
     Active Substance: CAPTOPRIL
     Indication: HYPERTENSION
     Dosage: 2 DF, UNK
     Route: 048
  8. COSENTYX [Suspect]
     Active Substance: SECUKINUMAB
     Dosage: UNK
     Route: 058
     Dates: start: 20180828, end: 20190228
  9. COSENTYX [Suspect]
     Active Substance: SECUKINUMAB
     Dosage: UNK MG, (EVERY 20 DAYS)
     Route: 058
     Dates: end: 20190228
  10. METFORMIN [Concomitant]
     Active Substance: METFORMIN HYDROCHLORIDE
     Indication: DIABETES MELLITUS
     Dosage: 1 DF, BID
     Route: 048
  11. COSENTYX [Suspect]
     Active Substance: SECUKINUMAB
     Indication: SPONDYLITIS
     Dosage: 300 MG, QW FOR 5 WEEKS
     Route: 058
     Dates: start: 20180706
  12. AMLODIPINE [Concomitant]
     Active Substance: AMLODIPINE BESYLATE
     Indication: HYPERTENSION
     Dosage: 1 DF, QD
     Route: 048
  13. HYDROCHLOROTHIAZIDE. [Concomitant]
     Active Substance: HYDROCHLOROTHIAZIDE
     Indication: SWELLING
     Dosage: 1 DF, PRN
     Route: 048

REACTIONS (25)
  - Angina pectoris [Recovering/Resolving]
  - Clavicle fracture [Recovering/Resolving]
  - Anaemia [Recovered/Resolved]
  - Upper limb fracture [Not Recovered/Not Resolved]
  - Joint dislocation [Unknown]
  - Speech disorder [Recovered/Resolved]
  - Intestinal mass [Recovered/Resolved]
  - Influenza [Unknown]
  - Pleural effusion [Recovered/Resolved]
  - Liver disorder [Unknown]
  - Memory impairment [Recovered/Resolved]
  - Abdominal pain upper [Recovered/Resolved]
  - Pain in extremity [Not Recovered/Not Resolved]
  - Dyspnoea [Recovered/Resolved]
  - Fall [Unknown]
  - Cardiac disorder [Recovered/Resolved]
  - Incorrect dose administered [Unknown]
  - Product use in unapproved indication [Unknown]
  - General physical health deterioration [Unknown]
  - Pain [Not Recovered/Not Resolved]
  - Arthralgia [Recovering/Resolving]
  - Hepatic steatosis [Recovered/Resolved]
  - Chest pain [Recovered/Resolved]
  - Breast cancer [Unknown]
  - Concomitant disease aggravated [Not Recovered/Not Resolved]

NARRATIVE: CASE EVENT DATE: 201808
